FAERS Safety Report 21144263 (Version 1)
Quarter: 2022Q3

REPORT INFORMATION
  Report Type: Spontaneous
  Country: US (occurrence: None)
  Receive Date: 20220728
  Receipt Date: 20220728
  Transmission Date: 20221026
  Serious: Yes (Other)
  Sender: FDA-Public Use
  Company Number: None

PATIENT
  Age: 26 Year
  Sex: Female
  Weight: 54 kg

DRUGS (2)
  1. TAMIFLU [Suspect]
     Active Substance: OSELTAMIVIR PHOSPHATE
     Indication: Influenza
     Dosage: OTHER QUANTITY : 2 TABLET(S);?
     Route: 048
  2. Advil 200 mg [Concomitant]

REACTIONS (4)
  - Confusional state [None]
  - Depression [None]
  - Anxiety [None]
  - Product complaint [None]

NARRATIVE: CASE EVENT DATE: 20220725
